FAERS Safety Report 11225399 (Version 1)
Quarter: 2015Q2

REPORT INFORMATION
  Report Type: Report from Study
  Country: DE (occurrence: DE)
  Receive Date: 20150629
  Receipt Date: 20150629
  Transmission Date: 20150821
  Serious: Yes (Other)
  Sender: FDA-Public Use
  Company Number: DE-ABBVIE-15K-062-1414345-00

PATIENT
  Age: 42 Year
  Sex: Female
  Weight: 68 kg

DRUGS (1)
  1. HUMIRA [Suspect]
     Active Substance: ADALIMUMAB
     Indication: PSORIASIS
     Route: 058
     Dates: start: 20130909, end: 20150323

REACTIONS (8)
  - Intervertebral disc protrusion [Recovered/Resolved]
  - Cervicitis [Unknown]
  - Cervix disorder [Unknown]
  - Uterine cervical squamous metaplasia [Unknown]
  - Cervical polyp [Unknown]
  - Cervix carcinoma [Recovered/Resolved]
  - Cyst [Unknown]
  - Cervical dysplasia [Recovered/Resolved]

NARRATIVE: CASE EVENT DATE: 2015
